FAERS Safety Report 11500487 (Version 1)
Quarter: 2015Q3

REPORT INFORMATION
  Report Type: Spontaneous
  Country: US (occurrence: None)
  Receive Date: 20150911
  Receipt Date: 20150911
  Transmission Date: 20151125
  Serious: Yes (Life-Threatening)
  Sender: FDA-Public Use
  Company Number: None

PATIENT
  Age: 75 Year
  Sex: Male
  Weight: 72 kg

DRUGS (2)
  1. ALTEPLASE [Concomitant]
     Active Substance: ALTEPLASE
     Indication: CEREBROVASCULAR ACCIDENT
     Route: 042
     Dates: start: 20150818, end: 20150818
  2. ALTEPLASE [Suspect]
     Active Substance: ALTEPLASE
     Indication: CEREBROVASCULAR ACCIDENT
     Route: 042
     Dates: start: 20150818, end: 20150818

REACTIONS (4)
  - Haemorrhage [None]
  - Haemoglobin decreased [None]
  - Haemothorax [None]
  - Pleural effusion [None]

NARRATIVE: CASE EVENT DATE: 20150818
